FAERS Safety Report 20216646 (Version 2)
Quarter: 2022Q1

REPORT INFORMATION
  Report Type: Spontaneous
  Country: US (occurrence: US)
  Receive Date: 20211222
  Receipt Date: 20220110
  Transmission Date: 20220423
  Serious: Yes (Death, Life-Threatening, Hospitalization, Other)
  Sender: FDA-Public Use
  Company Number: US-009507513-2112USA005157

PATIENT
  Sex: Female

DRUGS (1)
  1. PREVYMIS [Suspect]
     Active Substance: LETERMOVIR
     Indication: Acute monocytic leukaemia
     Dosage: 480 MILLIGRAM, QD
     Route: 048
     Dates: start: 20201023

REACTIONS (22)
  - Blast cell crisis [Fatal]
  - Hypoxia [Unknown]
  - Haematochezia [Unknown]
  - Pneumonia [Unknown]
  - Cellulitis [Unknown]
  - Type 2 diabetes mellitus [Unknown]
  - Acute myeloid leukaemia recurrent [Unknown]
  - Respiratory distress [Unknown]
  - Leukostasis syndrome [Unknown]
  - Pancytopenia [Unknown]
  - Thrombocytopenia [Unknown]
  - Anxiety [Unknown]
  - Hyperglycaemia [Unknown]
  - Hyperuricaemia [Unknown]
  - Oral herpes [Unknown]
  - Troponin abnormal [Unknown]
  - Candida infection [Unknown]
  - Endometrial thickening [Unknown]
  - Tachycardia [Unknown]
  - Oedema peripheral [Unknown]
  - Nausea [Unknown]
  - Vomiting [Unknown]

NARRATIVE: CASE EVENT DATE: 20200101
